FAERS Safety Report 10171690 (Version 2)
Quarter: 2014Q2

REPORT INFORMATION
  Report Type: Report from Study
  Country: US (occurrence: US)
  Receive Date: 20140514
  Receipt Date: 20140521
  Transmission Date: 20141212
  Serious: Yes (Other)
  Sender: FDA-Public Use
  Company Number: US-SA-2014SA059512

PATIENT
  Age: 56 Year
  Sex: Female

DRUGS (1)
  1. LANTUS [Suspect]
     Indication: TYPE 2 DIABETES MELLITUS
     Dosage: DOSE:60 UNIT(S)
     Route: 065
     Dates: start: 2009

REACTIONS (6)
  - Kidney infection [Unknown]
  - Back pain [Not Recovered/Not Resolved]
  - Chromaturia [Unknown]
  - Herpes zoster [Recovering/Resolving]
  - Rash [Recovering/Resolving]
  - Splenomegaly [Unknown]
